FAERS Safety Report 18329800 (Version 1)
Quarter: 2020Q3

REPORT INFORMATION
  Report Type: Spontaneous
  Country: US (occurrence: US)
  Receive Date: 20200930
  Receipt Date: 20200930
  Transmission Date: 20201103
  Serious: Yes (Other)
  Sender: FDA-Public Use
  Company Number: None

PATIENT
  Age: 70 Year
  Sex: Female

DRUGS (10)
  1. PIOGLITAZONE 45 MG [Concomitant]
     Dates: start: 20190901
  2. ALLOPURINOL 100 MG [Concomitant]
     Active Substance: ALLOPURINOL
     Dates: start: 20190901
  3. TYLENOL [Concomitant]
     Active Substance: ACETAMINOPHEN
     Dates: start: 20190901
  4. AMLODIPINE [Concomitant]
     Active Substance: AMLODIPINE BESYLATE
     Dates: start: 20190901
  5. SODIUM BICARBONATE. [Concomitant]
     Active Substance: SODIUM BICARBONATE
     Dates: start: 20190901
  6. FUROSEMIDE 40 MG [Concomitant]
     Active Substance: FUROSEMIDE
     Dates: start: 20190901
  7. HYDRALAZINE 50 MG [Concomitant]
     Dates: start: 20190901
  8. CARVEDILOL 25 MG [Concomitant]
     Active Substance: CARVEDILOL
     Dates: start: 20190901
  9. RAYALDEE [Suspect]
     Active Substance: CALCIFEDIOL
     Indication: HYPERPARATHYROIDISM
     Route: 048
     Dates: start: 20200924, end: 20200926
  10. ATORVASTATIN 20 MG [Concomitant]
     Active Substance: ATORVASTATIN
     Dates: start: 20190901

REACTIONS (3)
  - Insomnia [None]
  - Tachypnoea [None]
  - Diabetes mellitus inadequate control [None]

NARRATIVE: CASE EVENT DATE: 20200926
